FAERS Safety Report 6358932-3 (Version None)
Quarter: 2009Q3

REPORT INFORMATION
  Report Type: 
  Country: None (occurrence: None)
  Receive Date: 20090914
  Receipt Date: 20090904
  Transmission Date: 20100115
  Serious: Yes (Other)
  Sender: FDA-Public Use
  Company Number: 2009EU003470

PATIENT
  Age: 51 Year
  Sex: Female

DRUGS (3)
  1. PROGRAF [Suspect]
     Indication: PANCREAS ISLET CELL TRANSPLANT
     Dosage: 2 MG, UID/QD
     Dates: start: 20040801
  2. RAPAMUNE [Concomitant]
  3. ZENAPAX [Concomitant]

REACTIONS (1)
  - OPTIC NEUROPATHY [None]
